FAERS Safety Report 17676285 (Version 1)
Quarter: 2020Q2

REPORT INFORMATION
  Report Type: Report from Study
  Country: IT (occurrence: IT)
  Receive Date: 20200416
  Receipt Date: 20200416
  Transmission Date: 20200714
  Serious: Yes (Hospitalization)
  Sender: FDA-Public Use
  Company Number: IT-MYLANLABS-2020M1037757

PATIENT
  Age: 64 Year
  Sex: Female
  Weight: 75 kg

DRUGS (2)
  1. CISPLATIN. [Concomitant]
     Active Substance: CISPLATIN
     Indication: CERVIX CARCINOMA STAGE IV
     Dosage: 85 MILLIGRAM, CYCLE
     Route: 042
     Dates: start: 20200109, end: 20200109
  2. PACLITAXEL. [Suspect]
     Active Substance: PACLITAXEL
     Indication: CERVIX CARCINOMA STAGE IV
     Dosage: 300 MILLIGRAM, CYCLE
     Route: 042
     Dates: start: 20200109, end: 20200109

REACTIONS (3)
  - Spinal pain [Recovered/Resolved]
  - Dyspnoea [Recovered/Resolved]
  - Erythema [Recovered/Resolved]

NARRATIVE: CASE EVENT DATE: 20200109
